FAERS Safety Report 26201547 (Version 1)
Quarter: 2025Q4

REPORT INFORMATION
  Report Type: Spontaneous
  Country: US (occurrence: US)
  Receive Date: 20251226
  Receipt Date: 20251226
  Transmission Date: 20260118
  Serious: Yes (Life-Threatening, Hospitalization)
  Sender: ACCORD
  Company Number: US-MLMSERVICE-20251204-PI740340-00050-1

PATIENT
  Age: 41 Year
  Sex: Male

DRUGS (2)
  1. AMLODIPINE [Suspect]
     Active Substance: AMLODIPINE BESYLATE
     Indication: Product used for unknown indication
     Dosage: INTENTIONAL OVERDOSE OF 90 DAY^S WORTH OF AMLODIPINE (10 MG)
  2. CHLORTHALIDONE [Suspect]
     Active Substance: CHLORTHALIDONE
     Indication: Product used for unknown indication
     Dosage: INTENTIONAL OVERDOSE OF 90 DAY^S  WORTH OF CHLORTHALIDONE (25 MG)

REACTIONS (7)
  - Hypoxia [Recovered/Resolved]
  - Pulmonary artery dilatation [Unknown]
  - Atelectasis [Unknown]
  - Vasoconstriction [Unknown]
  - Ventilation perfusion mismatch [Unknown]
  - Blood pressure decreased [Unknown]
  - Intentional overdose [Unknown]
